FAERS Safety Report 5208959-X (Version None)
Quarter: 2007Q1

REPORT INFORMATION
  Report Type: 
  Country: None (occurrence: None)
  Receive Date: 20070111
  Receipt Date: 20070111
  Transmission Date: 20070707
  Serious: Yes (Death, Hospitalization)
  Sender: FDA-Public Use
  Company Number: None

PATIENT
  Age: 62 Year
  Sex: Female
  Weight: 42.6381 kg

DRUGS (1)
  1. BEVACIZUMAB [Suspect]
     Indication: PANCREATIC CARCINOMA
     Dosage: 446.00 MG Q 2 WEEKS IV
     Route: 042
     Dates: start: 20060713, end: 20060713

REACTIONS (7)
  - DISEASE PROGRESSION [None]
  - DYSPNOEA [None]
  - INFECTION [None]
  - LUNG NEOPLASM [None]
  - METASTASES TO LUNG [None]
  - PAIN [None]
  - PULMONARY EMBOLISM [None]
